FAERS Safety Report 7426777-9 (Version None)
Quarter: 2011Q2

REPORT INFORMATION
  Report Type: 
  Country: None (occurrence: None)
  Receive Date: 20110420
  Receipt Date: 20110209
  Transmission Date: 20111010
  Serious: Yes (Death)
  Sender: FDA-Public Use
  Company Number: PHHY2011NL11608

PATIENT
  Age: 69 Year
  Sex: Female

DRUGS (7)
  1. ACETYLSALICYLIC ACID SRT [Suspect]
     Dosage: UNK UKN, UNK
     Route: 048
  2. AMITRIPTYLINE HCL [Suspect]
     Dosage: UNK UKN, UNK
     Route: 048
  3. ISOSORBIDE MONONITRATE [Suspect]
     Dosage: UNK UKN, UNK
     Route: 048
  4. ENALAPRIL MALEATE [Suspect]
     Dosage: UNK UKN, UNK
  5. NEBIVOLOL HCL [Suspect]
     Dosage: UNK UKN, UNK
     Route: 047
  6. PRAVASTATIN [Suspect]
     Dosage: UNK UKN, UNK
     Route: 048
  7. DIAZEPAM [Suspect]
     Dosage: UNK UKN, UNK
     Route: 048

REACTIONS (3)
  - HEADACHE [None]
  - ACCIDENT [None]
  - DEPRESSION [None]
